FAERS Safety Report 15551928 (Version 1)
Quarter: 2018Q4

REPORT INFORMATION
  Report Type: Report from Study
  Country: EG (occurrence: EG)
  Receive Date: 20181025
  Receipt Date: 20181025
  Transmission Date: 20190205
  Serious: Yes (Hospitalization, Other)
  Sender: FDA-Public Use
  Company Number: EG-SA-2018SA292267

PATIENT
  Age: 13 Year
  Sex: Female

DRUGS (4)
  1. ACTRAPID [Concomitant]
     Active Substance: INSULIN HUMAN
     Indication: TYPE 1 DIABETES MELLITUS
     Dosage: UNK IU
     Route: 058
  2. INSULIN GLARGINE [Suspect]
     Active Substance: INSULIN GLARGINE
     Indication: TYPE 1 DIABETES MELLITUS
     Dosage: 15 IU, QD
     Route: 058
     Dates: start: 201411
  3. INSULIN GLARGINE [Suspect]
     Active Substance: INSULIN GLARGINE
     Dosage: 17 IU, QD
     Route: 058
  4. ACTRAPID [Concomitant]
     Active Substance: INSULIN HUMAN
     Dosage: UNK

REACTIONS (2)
  - Hyperglycaemia [Recovered/Resolved]
  - Diabetic ketoacidosis [Recovered/Resolved]

NARRATIVE: CASE EVENT DATE: 20181011
